FAERS Safety Report 9011450 (Version 1)
Quarter: 2013Q1

REPORT INFORMATION
  Report Type: Spontaneous
  Country: US (occurrence: US)
  Receive Date: 20130111
  Receipt Date: 20130111
  Transmission Date: 20140127
  Serious: Yes (Hospitalization)
  Sender: FDA-Public Use
  Company Number: US-009507513-1301USA001699

PATIENT
  Age: 83 Year
  Sex: Female

DRUGS (5)
  1. SINGULAIR [Suspect]
     Dosage: 10 MG, QD
     Route: 048
  2. CARDIZEM [Concomitant]
     Indication: ASTHMA
  3. [THERAPY UNSPECIFIED] [Concomitant]
     Indication: ATRIAL FIBRILLATION
  4. CORTICOSTEROIDS (UNSPECIFIED) [Concomitant]
  5. RYTHMOL [Suspect]
     Dosage: 325 MG, BID
     Route: 048

REACTIONS (2)
  - Lung infiltration [Unknown]
  - Alveolitis [Unknown]
